FAERS Safety Report 13523799 (Version 4)
Quarter: 2018Q3

REPORT INFORMATION
  Report Type: Spontaneous
  Country: US (occurrence: US)
  Receive Date: 20170508
  Receipt Date: 20180910
  Transmission Date: 20181010
  Serious: No
  Sender: FDA-Public Use
  Company Number: US-VIFOR (INTERNATIONAL) INC.-VIT-2017-03603

PATIENT
  Sex: Male

DRUGS (12)
  1. NOVOLOG [Concomitant]
     Active Substance: INSULIN ASPART
  2. EMLA [Concomitant]
     Active Substance: LIDOCAINE\PRILOCAINE
  3. FOLIC ACID. [Concomitant]
     Active Substance: FOLIC ACID
  4. VELTASSA [Suspect]
     Active Substance: PATIROMER
     Indication: HYPERKALAEMIA
     Route: 048
     Dates: start: 20160812
  5. COUMADIN [Concomitant]
     Active Substance: WARFARIN SODIUM
  6. ZEMPLAR [Concomitant]
     Active Substance: PARICALCITOL
  7. CYMBALTA [Concomitant]
     Active Substance: DULOXETINE HYDROCHLORIDE
  8. SENSIPAR [Concomitant]
     Active Substance: CINACALCET HYDROCHLORIDE
  9. RENVELA [Concomitant]
     Active Substance: SEVELAMER CARBONATE
  10. ASPIRIN. [Concomitant]
     Active Substance: ASPIRIN
  11. REQUIP [Concomitant]
     Active Substance: ROPINIROLE HYDROCHLORIDE
  12. MIRALAX [Concomitant]
     Active Substance: POLYETHYLENE GLYCOL 3350

REACTIONS (2)
  - Constipation [Not Recovered/Not Resolved]
  - Seasonal allergy [Not Recovered/Not Resolved]
